FAERS Safety Report 7275737-X (Version None)
Quarter: 2011Q1

REPORT INFORMATION
  Report Type: 
  Country: None (occurrence: None)
  Receive Date: 20110204
  Receipt Date: 20110120
  Transmission Date: 20110831
  Serious: Yes (Hospitalization, Other)
  Sender: FDA-Public Use
  Company Number: NZ-BAYER-2011-003727

PATIENT
  Sex: Male
  Weight: 69 kg

DRUGS (7)
  1. VOLTAREN [Suspect]
     Indication: MYALGIA
  2. LAXSOL [Concomitant]
     Indication: CONSTIPATION
     Dosage: UNK UNK, PRN
     Dates: start: 20100626
  3. SORAFENIB (RAF KINASE INHIBITOR) [Suspect]
     Indication: HEPATIC NEOPLASM MALIGNANT
     Dosage: 400 MG, BID
     Route: 048
     Dates: start: 20100527, end: 20100806
  4. ENTECAVIR [Concomitant]
     Indication: HEPATITIS B
     Dosage: .5 MG, UNK
     Dates: start: 20100510
  5. CALCIUM CARBONATE [Concomitant]
     Indication: BLOOD CALCIUM DECREASED
     Dosage: 1.25 G, UNK
     Dates: start: 20100729
  6. ERLOTINIB [Suspect]
     Indication: HEPATIC NEOPLASM MALIGNANT
     Dosage: UNK
     Dates: start: 20100527, end: 20100806
  7. VOLTAREN [Suspect]
     Indication: ARTHRALGIA
     Dosage: 75 MG, UNK
     Dates: start: 20100626, end: 20100728

REACTIONS (1)
  - GASTRIC ULCER [None]
